FAERS Safety Report 17979366 (Version 1)
Quarter: 2020Q3

REPORT INFORMATION
  Report Type: Spontaneous
  Country: FR (occurrence: FR)
  Receive Date: 20200703
  Receipt Date: 20200703
  Transmission Date: 20201103
  Serious: Yes (Other)
  Sender: FDA-Public Use
  Company Number: FR-SERVIER-S20006046

PATIENT

DRUGS (7)
  1. ARACYTINE [Concomitant]
     Active Substance: CYTARABINE
     Indication: ACUTE MYELOID LEUKAEMIA
     Dosage: 30 MG
     Route: 065
     Dates: start: 20200507
  2. TN  UNSPECIFIED [Concomitant]
     Dosage: UNK
     Route: 065
     Dates: start: 20200521
  3. HYDROCORTISONE. [Concomitant]
     Active Substance: HYDROCORTISONE
     Indication: ACUTE MYELOID LEUKAEMIA
     Dosage: UNK
     Route: 065
     Dates: start: 20200507
  4. HYDROCORTISONE. [Concomitant]
     Active Substance: HYDROCORTISONE
     Dosage: UNK
     Route: 065
     Dates: start: 20200521
  5. ONCASPAR [Suspect]
     Active Substance: PEGASPARGASE
     Indication: OFF LABEL USE
     Dosage: 2500 IU, UNK
     Route: 042
     Dates: start: 20200507, end: 20200507
  6. ONCASPAR [Suspect]
     Active Substance: PEGASPARGASE
     Indication: ACUTE MYELOID LEUKAEMIA
     Dosage: 2500 IU, UNK
     Route: 042
     Dates: start: 20200521, end: 20200521
  7. TN  UNSPECIFIED [Concomitant]
     Indication: ACUTE MYELOID LEUKAEMIA
     Dosage: UNK
     Route: 065
     Dates: start: 20200507

REACTIONS (5)
  - Haematotoxicity [Recovered/Resolved]
  - Hypersensitivity [Recovered/Resolved]
  - Platelet count decreased [Recovered/Resolved]
  - Neutrophil count decreased [Recovered/Resolved]
  - Haemoglobin decreased [Recovered/Resolved]

NARRATIVE: CASE EVENT DATE: 202005
